FAERS Safety Report 8309991-X (Version None)
Quarter: 2012Q1

REPORT INFORMATION
  Report Type: 
  Country: None (occurrence: None)
  Receive Date: 20120315
  Receipt Date: 20110329
  Transmission Date: 20120608
  Serious: No
  Sender: FDA-Public Use
  Company Number: PHHY2011US16915

PATIENT
  Sex: Female

DRUGS (4)
  1. ATIVAN [Concomitant]
  2. BACLOFEN [Concomitant]
  3. CITALOPRAM (CELEXA) (CITALOPRAM) [Concomitant]
  4. GILENYA [Suspect]
     Indication: MULTIPLE SCLEROSIS
     Dosage: 0.5 MG, QD, ORAL
     Dates: start: 20110204

REACTIONS (1)
  - CHEST PAIN [None]
